FAERS Safety Report 21720687 (Version 1)
Quarter: 2022Q4

REPORT INFORMATION
  Report Type: Spontaneous
  Country: FR (occurrence: FR)
  Receive Date: 20221213
  Receipt Date: 20221213
  Transmission Date: 20230113
  Serious: Yes (Death)
  Sender: FDA-Public Use
  Company Number: None

PATIENT
  Age: 75 Year
  Sex: Male
  Weight: 95 kg

DRUGS (3)
  1. METHOTREXATE [Suspect]
     Active Substance: METHOTREXATE
     Indication: Rheumatoid arthritis
     Dosage: MG/WEEK
     Dates: end: 20210313
  2. COMIRNATY [Suspect]
     Active Substance: TOZINAMERAN
     Indication: COVID-19 immunisation
     Dosage: D1, STRENGTH: DISPERSION TO BE DILUTED FOR INJECTION. COVID-19 MRNA?VACCINE (NUCLEOSIDE MODIFIED)
     Dates: start: 20210312, end: 20210312
  3. BISOPROLOL FUMARATE\HYDROCHLOROTHIAZIDE [Suspect]
     Active Substance: BISOPROLOL FUMARATE\HYDROCHLOROTHIAZIDE
     Indication: Hypertension
     Dosage: STRENGTH:  2.5MG/6.25MG FILM-COATED TABLETS
     Dates: end: 20210313

REACTIONS (3)
  - Atrial fibrillation [Fatal]
  - Ischaemic stroke [Fatal]
  - Pneumonia aspiration [Fatal]

NARRATIVE: CASE EVENT DATE: 20210314
